FAERS Safety Report 8598743-1 (Version None)
Quarter: 2012Q3

REPORT INFORMATION
  Report Type: 
  Country: None (occurrence: None)
  Receive Date: 20120816
  Receipt Date: 20120808
  Transmission Date: 20120928
  Serious: Yes (Hospitalization, Other)
  Sender: FDA-Public Use
  Company Number: US-MPIJNJ-2012-02328

PATIENT
  Sex: Female
  Weight: 87.8 kg

DRUGS (39)
  1. SENNOSIDES A+B [Concomitant]
     Indication: CONSTIPATION
     Dosage: UNK
     Dates: start: 20120331
  2. NYSTATIN [Concomitant]
     Indication: PRODUCT USED FOR UNKNOWN INDICATION
     Dosage: 40000 IU, UNK
     Route: 049
     Dates: start: 20120330
  3. DEXAMETHASONE [Suspect]
     Indication: MANTLE CELL LYMPHOMA
     Dosage: 40 MG, UNK
     Route: 048
  4. CYTARABINE [Suspect]
     Indication: MANTLE CELL LYMPHOMA
     Dosage: 1.87 G, CYCLIC
     Route: 042
  5. DIPHENHYDRAMINE HYDROCHLORIDE [Concomitant]
     Indication: PREMEDICATION
     Route: 042
  6. VELCADE [Suspect]
     Dosage: 0.7 MG/M2, CYCLIC
     Route: 042
     Dates: start: 20120319
  7. VINCRISTINE [Suspect]
     Indication: MANTLE CELL LYMPHOMA
     Dosage: 2 MG, CYCLIC
     Route: 042
  8. NEUPOGEN [Concomitant]
     Indication: PRODUCT USED FOR UNKNOWN INDICATION
     Dosage: 480 A?G, QD
     Route: 058
  9. FLUCONAZOLE [Concomitant]
     Indication: PRODUCT USED FOR UNKNOWN INDICATION
     Dosage: 100 MG, QD
     Route: 048
  10. ZOFRAN [Concomitant]
     Indication: NAUSEA
     Dosage: 8 MG, UNK
     Route: 048
  11. VALTREX [Concomitant]
     Indication: ANTIVIRAL PROPHYLAXIS
     Dosage: 500 MG, QD
     Route: 048
     Dates: start: 20120329
  12. SODIUM CHLORIDE [Concomitant]
     Dosage: 10 ML, UNK
     Dates: start: 20120401
  13. MEPERIDINE HCL [Concomitant]
     Indication: PRODUCT USED FOR UNKNOWN INDICATION
     Dosage: 25 MG, UNK
     Route: 042
  14. VELCADE [Suspect]
     Indication: MANTLE CELL LYMPHOMA
     Dosage: 2.77 MG, CYCLIC
     Route: 042
     Dates: start: 20111231
  15. VELCADE [Suspect]
     Dosage: 0.7 MG/M2, CYCLIC
     Route: 042
  16. POTASSIUM CHLORIDE [Concomitant]
     Indication: PRODUCT USED FOR UNKNOWN INDICATION
     Dosage: 8 MEQ, UNK
     Dates: start: 20120329
  17. LEUCOVORIN CALCIUM [Concomitant]
     Indication: PRODUCT USED FOR UNKNOWN INDICATION
     Dosage: 50 MG, UNK
     Route: 048
  18. ZOFRAN [Concomitant]
     Indication: VOMITING
     Dosage: 8 MG, UNK
     Route: 042
     Dates: start: 20120329
  19. SODIUM CHLORIDE [Concomitant]
     Indication: PRODUCT USED FOR UNKNOWN INDICATION
     Dosage: 1000 MG, UNK
     Dates: start: 20120329
  20. SODIUM CHLORIDE [Concomitant]
     Dosage: 1000 ML, UNK
     Dates: start: 20120330
  21. SODIUM CHLORIDE [Concomitant]
     Dosage: 10 ML, UNK
     Dates: start: 20120330
  22. HEPARIN [Concomitant]
     Indication: PRODUCT USED FOR UNKNOWN INDICATION
     Dosage: 200 IU, UNK
     Route: 042
     Dates: start: 20120401
  23. LEUCOVORIN CALCIUM [Concomitant]
     Dosage: 15 MG, UNK
  24. ALLOPURINOL [Concomitant]
     Indication: PRODUCT USED FOR UNKNOWN INDICATION
     Dosage: 300 MG, UNK
     Route: 048
  25. VELCADE [Suspect]
     Dosage: 0.7 MG/M2, CYCLIC
     Route: 042
     Dates: start: 20120226
  26. RITUXIMAB [Suspect]
     Indication: MANTLE CELL LYMPHOMA
     Dosage: 1 MG/M2, CYCLIC
     Route: 042
  27. CYCLOPHOSPHAMIDE [Suspect]
     Indication: MANTLE CELL LYMPHOMA
     Route: 065
  28. LOVENOX [Concomitant]
     Dosage: 120 MG, UNK
     Route: 058
     Dates: start: 20120329
  29. MORPHINE [Concomitant]
     Indication: PRODUCT USED FOR UNKNOWN INDICATION
     Dosage: 2 MG, UNK
     Route: 042
     Dates: start: 20120329
  30. SENOKOT [Concomitant]
     Indication: PRODUCT USED FOR UNKNOWN INDICATION
  31. DOXORUBICIN HYDROCHLORIDE [Suspect]
     Indication: MANTLE CELL LYMPHOMA
     Dosage: 50 MG/M2, UNK
     Route: 042
  32. METHOTREXATE [Suspect]
     Indication: MANTLE CELL LYMPHOMA
     Route: 065
  33. MESNA [Suspect]
     Indication: MANTLE CELL LYMPHOMA
     Dosage: 600 MG/M2, UNK
     Route: 042
  34. CIPRO                              /00042702/ [Concomitant]
     Indication: PRODUCT USED FOR UNKNOWN INDICATION
     Dosage: 500 MG, BID
     Route: 048
  35. LOVENOX [Concomitant]
     Indication: DEEP VEIN THROMBOSIS
     Dosage: 120 MG, UNK
     Route: 058
     Dates: start: 20120330
  36. PREDNISOLONE ACETATE [Concomitant]
     Indication: EYE DISORDER
     Dosage: 2 GTT, UNK
     Route: 047
     Dates: start: 20120330
  37. STOMATOLOGICALS, MOUTH PREPARATIONS [Concomitant]
     Indication: DENTAL DISORDER PROPHYLAXIS
     Dosage: 10 ML, UNK
     Route: 048
  38. TRAMADOL [Concomitant]
     Indication: PRODUCT USED FOR UNKNOWN INDICATION
     Dosage: 50 MG, UNK
     Route: 048
     Dates: start: 20120329
  39. SODIUM BICARBONATE [Concomitant]
     Indication: PRODUCT USED FOR UNKNOWN INDICATION
     Dosage: UNK
     Route: 049
     Dates: start: 20120330

REACTIONS (7)
  - LEUKOCYTOSIS [None]
  - PLEURAL EFFUSION [None]
  - PYREXIA [None]
  - UPPER RESPIRATORY TRACT INFECTION [None]
  - SINUSITIS [None]
  - NEUROPATHY PERIPHERAL [None]
  - URINARY TRACT INFECTION [None]
